FAERS Safety Report 9105601 (Version 1)
Quarter: 2013Q1

REPORT INFORMATION
  Report Type: Spontaneous
  Country: US (occurrence: US)
  Receive Date: 20130220
  Receipt Date: 20130220
  Transmission Date: 20140127
  Serious: Yes (Other)
  Sender: FDA-Public Use
  Company Number: US-BAYER-2013-020378

PATIENT
  Age: 41 Year
  Sex: Female
  Weight: 58.96 kg

DRUGS (5)
  1. YASMIN [Suspect]
     Indication: MENSTRUATION IRREGULAR
     Dosage: UNK
     Dates: start: 200111, end: 200502
  2. CELEBREX [Concomitant]
  3. DESOWEN [Concomitant]
  4. ORAL CONTRACEPTIVE NOS [Concomitant]
  5. NAPROSYN [Concomitant]

REACTIONS (10)
  - Deep vein thrombosis [None]
  - Local swelling [None]
  - Pain in extremity [None]
  - Limb discomfort [None]
  - Headache [None]
  - Venous insufficiency [None]
  - Post thrombotic syndrome [None]
  - Dyspnoea [None]
  - Pulmonary embolism [None]
  - Off label use [None]
